FAERS Safety Report 6893040-4 (Version None)
Quarter: 2010Q3

REPORT INFORMATION
  Report Type: 
  Country: None (occurrence: None)
  Receive Date: 20100731
  Receipt Date: 20090222
  Transmission Date: 20110219
  Serious: No
  Sender: FDA-Public Use
  Company Number: US-PFIZER INC-2008150491

PATIENT
  Sex: Female

DRUGS (2)
  1. NORVASC [Suspect]
  2. AMLODIPINE/LISINOPRIL [Suspect]

REACTIONS (5)
  - DYSPNOEA [None]
  - GAIT DISTURBANCE [None]
  - MUSCLE SPASMS [None]
  - MUSCLE TIGHTNESS [None]
  - OEDEMA PERIPHERAL [None]
